FAERS Safety Report 17324932 (Version 1)
Quarter: 2020Q1

REPORT INFORMATION
  Report Type: Spontaneous
  Country: US (occurrence: US)
  Receive Date: 20200125
  Receipt Date: 20200125
  Transmission Date: 20200409
  Serious: Yes (Other)
  Sender: FDA-Public Use
  Company Number: None

PATIENT
  Age: 5 Year
  Sex: Male
  Weight: 20.25 kg

DRUGS (3)
  1. VITAMINS [Concomitant]
     Active Substance: VITAMINS
  2. YOUNG LIVING ESSENTIAL OILS [Concomitant]
  3. OSELTAMIVIR PHOSPHATE. [Suspect]
     Active Substance: OSELTAMIVIR PHOSPHATE
     Indication: INFLUENZA
     Dosage: ??          QUANTITY:120 ML;?
     Route: 048
     Dates: start: 20200125, end: 20200125

REACTIONS (1)
  - Hallucination [None]

NARRATIVE: CASE EVENT DATE: 20200125
